FAERS Safety Report 5059735-2 (Version None)
Quarter: 2006Q2

REPORT INFORMATION
  Report Type: 
  Country: None (occurrence: None)
  Receive Date: 20060629
  Receipt Date: 20060217
  Transmission Date: 20061013
  Serious: Yes (Hospitalization, Other)
  Sender: FDA-Public Use
  Company Number: SERX20060001

PATIENT
  Age: 40 Year
  Sex: Male

DRUGS (1)
  1. OXAZEPAM [Suspect]
     Dosage: 150 MG DAILY PO
     Route: 048
     Dates: start: 20050101

REACTIONS (1)
  - DRUG DEPENDENCE [None]
